FAERS Safety Report 16375500 (Version 5)
Quarter: 2019Q3

REPORT INFORMATION
  Report Type: Spontaneous
  Country: EG (occurrence: EG)
  Receive Date: 20190531
  Receipt Date: 20190809
  Transmission Date: 20191004
  Serious: Yes (Death, Other)
  Sender: FDA-Public Use
  Company Number: EG-SA-2019SA112915

PATIENT
  Age: 3 Year
  Sex: Male

DRUGS (7)
  1. IMIGLUCERASE [Suspect]
     Active Substance: IMIGLUCERASE
     Dosage: 20 IU/KG, Q3W
     Route: 041
  2. IMIGLUCERASE [Suspect]
     Active Substance: IMIGLUCERASE
     Indication: GAUCHER^S DISEASE TYPE III
     Dosage: 45 IU/KG, QOW
     Route: 041
     Dates: start: 2011
  3. MUCOSOLVAN [Concomitant]
     Active Substance: AMBROXOL HYDROCHLORIDE
     Indication: CHEST DISCOMFORT
     Dosage: 10 ML/KG, QD
     Route: 065
     Dates: start: 20160913, end: 20160920
  4. HIBIOTIC [Concomitant]
     Indication: CHEST DISCOMFORT
     Dosage: 70 MG/KG, QD
     Route: 065
     Dates: start: 20160913, end: 20160920
  5. EXPECTORANT [AMMONIUM CHLORIDE;GLYCYRRHIZA GLABRA LIQUID EXTRACT] [Concomitant]
     Indication: CHEST DISCOMFORT
     Dosage: 10 ML/KG, QD
     Route: 065
     Dates: start: 20160913, end: 20160920
  6. BISOLVON [Concomitant]
     Active Substance: BROMHEXINE HYDROCHLORIDE
     Indication: CHEST DISCOMFORT
     Dosage: UNK UNK, QD
     Route: 065
     Dates: start: 20160913, end: 20160920
  7. DEPAKINE [VALPROIC ACID] [Concomitant]
     Active Substance: VALPROIC ACID
     Indication: SEIZURE

REACTIONS (3)
  - Wrong technique in product usage process [Unknown]
  - Respiratory failure [Fatal]
  - Seizure [Unknown]

NARRATIVE: CASE EVENT DATE: 2016
